FAERS Safety Report 7956326-8 (Version None)
Quarter: 2011Q4

REPORT INFORMATION
  Report Type: 
  Country: None (occurrence: None)
  Receive Date: 20111125
  Receipt Date: 20111111
  Transmission Date: 20120403
  Serious: No
  Sender: FDA-Public Use
  Company Number: 2011PROUSA00644

PATIENT
  Age: 63 Year
  Sex: Male
  Weight: 102.7 kg

DRUGS (11)
  1. ASPIRIN [Concomitant]
  2. METFORMIN HCL [Concomitant]
  3. MULTIVITAMIN /00097801/ (ASCORBIC ACID, CALCIUM PANTOTHENATE, ERGOCALC [Concomitant]
  4. VYTORIN [Concomitant]
  5. E VITAMIN (TOCOPHEROL) [Concomitant]
  6. PROVENGE [Suspect]
     Indication: PROSTATE CANCER METASTATIC
     Dosage: 250 ML, SINGLE, INTRAVENOUS
     Route: 042
     Dates: start: 20110815, end: 20110815
  7. ALLOPURINOL [Concomitant]
  8. AMLODIPIN BESYLATE AND BENAZEPRIL HYDROCHLORI (AMLODIPINE BESILATE, BE [Concomitant]
  9. MIRALAX /00754501/ (MACROGOL) [Concomitant]
  10. MEGACE [Concomitant]
  11. ZOFRAN	/00955301/ (ONDANSETRON) [Concomitant]

REACTIONS (2)
  - BACTERIAL INFECTION [None]
  - URINARY TRACT INFECTION BACTERIAL [None]
